FAERS Safety Report 5714516-9 (Version None)
Quarter: 2008Q2

REPORT INFORMATION
  Report Type: 
  Country: None (occurrence: None)
  Receive Date: 20080423
  Receipt Date: 20080418
  Transmission Date: 20081010
  Serious: Yes (Hospitalization)
  Sender: FDA-Public Use
  Company Number: US-AVENTIS-200812498US

PATIENT
  Age: 59 Year
  Sex: Male

DRUGS (2)
  1. LOVENOX [Suspect]
     Route: 051
     Dates: start: 20080403, end: 20080411
  2. PERCOCET [Concomitant]
     Dosage: DOSE: UNK

REACTIONS (7)
  - BODY TEMPERATURE INCREASED [None]
  - INJECTION SITE DISCOLOURATION [None]
  - INJECTION SITE ERYTHEMA [None]
  - INJECTION SITE IRRITATION [None]
  - INJECTION SITE PAIN [None]
  - INJECTION SITE REACTION [None]
  - WOUND SEPSIS [None]
